FAERS Safety Report 7533689-9 (Version None)
Quarter: 2011Q2

REPORT INFORMATION
  Report Type: 
  Country: None (occurrence: None)
  Receive Date: 20110608
  Receipt Date: 20110531
  Transmission Date: 20111010
  Serious: Yes (Death, Other)
  Sender: FDA-Public Use
  Company Number: FR-ELI_LILLY_AND_COMPANY-FR201105008609

PATIENT
  Sex: Male

DRUGS (5)
  1. CISPLATIN [Concomitant]
  2. LASIX [Concomitant]
     Dosage: 500 MG, BID
     Dates: start: 20110305
  3. ATORVASTATIN [Concomitant]
     Dosage: 10 MG, QD
  4. ALIMTA [Suspect]
     Dosage: 750 MG, UNKNOWN
     Dates: start: 20110324, end: 20110324
  5. ALIMTA [Suspect]
     Dosage: 1000 MG, SINGLE
     Route: 042
     Dates: start: 20110211

REACTIONS (6)
  - BONE MARROW FAILURE [None]
  - PYREXIA [None]
  - DEATH [None]
  - OTITIS MEDIA ACUTE [None]
  - STEVENS-JOHNSON SYNDROME [None]
  - ERYSIPELAS [None]
